FAERS Safety Report 12446375 (Version 5)
Quarter: 2017Q3

REPORT INFORMATION
  Report Type: Report from Study
  Country: IT (occurrence: IT)
  Receive Date: 20160608
  Receipt Date: 20170920
  Transmission Date: 20171127
  Serious: Yes (Death, Hospitalization, Disabling)
  Sender: FDA-Public Use
  Company Number: IT-ROCHE-1769270

PATIENT
  Age: 72 Year
  Sex: Male

DRUGS (17)
  1. CHLORAMBUCIL [Suspect]
     Active Substance: CHLORAMBUCIL
     Indication: EXTRANODAL MARGINAL ZONE B-CELL LYMPHOMA (MALT TYPE)
     Dosage: 6 MG/M2 FOR 42 COSECUTIVE WEEKS
     Route: 048
     Dates: start: 20150420, end: 20150601
  2. NISTATIN [Concomitant]
     Active Substance: NYSTATIN
     Indication: PROPHYLAXIS
     Dosage: 1X3
     Route: 048
     Dates: start: 20150417
  3. CHLORAMBUCIL [Suspect]
     Active Substance: CHLORAMBUCIL
     Dosage: LAST DOSE PRIOR TO SAE: 27/SEP/2015. 6 MG/MQ FOR 14 CONSECUTIVE DAYS (D1-14). EVERY 28 DAYS FOR 4 CY
     Route: 048
     Dates: start: 20150615, end: 20150928
  4. GAVISCON (ITALY) [Concomitant]
     Route: 048
     Dates: start: 20150404
  5. ALLOPURINOL. [Concomitant]
     Active Substance: ALLOPURINOL
     Indication: PROPHYLAXIS
     Route: 048
     Dates: start: 20150404
  6. PARACETAMOL [Concomitant]
     Active Substance: ACETAMINOPHEN
     Route: 048
     Dates: start: 20150729
  7. VALACICLOVIR [Concomitant]
     Active Substance: VALACYCLOVIR HYDROCHLORIDE
     Route: 048
     Dates: start: 20150710
  8. RITUXIMAB. [Suspect]
     Active Substance: RITUXIMAB
     Indication: EXTRANODAL MARGINAL ZONE B-CELL LYMPHOMA (MALT TYPE)
     Dosage: DAY 1 OF EACH 28-DAY CYCLE. LAST DOSE PRIOR TO THE EVENT : 14/SEP/2015
     Route: 058
     Dates: start: 20150615
  9. ONDANSETRON [Concomitant]
     Active Substance: ONDANSETRON
     Indication: NAUSEA
     Route: 048
     Dates: start: 20150417
  10. PARACETAMOL [Concomitant]
     Active Substance: ACETAMINOPHEN
     Route: 048
     Dates: start: 20151011, end: 20151012
  11. SERTRALINE [Concomitant]
     Active Substance: SERTRALINE HYDROCHLORIDE
     Indication: DEPRESSION
     Route: 048
     Dates: start: 20150827
  12. CHLORHEXIDINE [Concomitant]
     Active Substance: CHLORHEXIDINE
  13. CHLORPHENAMINE [Concomitant]
     Active Substance: CHLORPHENIRAMINE MALEATE
     Route: 042
     Dates: start: 20161209, end: 20161213
  14. RITUXIMAB. [Suspect]
     Active Substance: RITUXIMAB
     Indication: EXTRANODAL MARGINAL ZONE B-CELL LYMPHOMA (MALT TYPE)
     Dosage: 375MG/M2 ON DAY 1 WEEK 1 AS PER PROTOCOL?4 CYCLE (PHASE I PROTOCOL IELSG38)
     Route: 041
     Dates: start: 20150420, end: 20150511
  15. METHYLPREDNISOLONE. [Suspect]
     Active Substance: METHYLPREDNISOLONE
     Indication: EXTRANODAL MARGINAL ZONE B-CELL LYMPHOMA (MALT TYPE)
     Dosage: 1 CYCLE
     Route: 048
     Dates: start: 20150420, end: 20150420
  16. PEPTAZOL (ITALY) [Concomitant]
     Indication: PROPHYLAXIS
     Route: 048
     Dates: start: 20150404
  17. LEVOFLOXACIN. [Concomitant]
     Active Substance: LEVOFLOXACIN
     Indication: PROPHYLAXIS
     Route: 048
     Dates: start: 20151011, end: 20151013

REACTIONS (2)
  - Cerebellar ataxia [Fatal]
  - Paraneoplastic syndrome [Fatal]

NARRATIVE: CASE EVENT DATE: 20160108
